FAERS Safety Report 5885921-5 (Version None)
Quarter: 2008Q3

REPORT INFORMATION
  Report Type: 
  Country: None (occurrence: None)
  Receive Date: 20080917
  Receipt Date: 20080630
  Transmission Date: 20090109
  Serious: No
  Sender: FDA-Public Use
  Company Number: US-BAYER-200827579NA

PATIENT
  Age: 55 Year
  Sex: Male

DRUGS (3)
  1. LEVITRA [Suspect]
     Indication: ERECTILE DYSFUNCTION
     Dosage: UNIT DOSE: 10 MG
     Route: 048
     Dates: start: 20080616
  2. CARDIA [Concomitant]
  3. PRILOSEC [Concomitant]

REACTIONS (3)
  - ABDOMINAL DISTENSION [None]
  - DYSPEPSIA [None]
  - NAUSEA [None]
